FAERS Safety Report 9415093 (Version 1)
Quarter: 2013Q3

REPORT INFORMATION
  Report Type: Spontaneous
  Country: FR (occurrence: FR)
  Receive Date: 20130723
  Receipt Date: 20130723
  Transmission Date: 20140515
  Serious: Yes (Other)
  Sender: FDA-Public Use
  Company Number: FR-ROCHE-1252024

PATIENT
  Age: 42 Year
  Sex: Female
  Weight: 60 kg

DRUGS (2)
  1. ROACTEMRA [Suspect]
     Indication: TAKAYASU^S ARTERITIS
     Route: 041
     Dates: start: 20130328, end: 20130430
  2. ROACTEMRA [Suspect]
     Indication: OFF LABEL USE

REACTIONS (1)
  - Neck pain [Recovering/Resolving]
